FAERS Safety Report 5736447-0 (Version None)
Quarter: 2008Q2

REPORT INFORMATION
  Report Type: 
  Country: None (occurrence: None)
  Receive Date: 20080508
  Receipt Date: 20080428
  Transmission Date: 20081010
  Serious: Yes (Other)
  Sender: FDA-Public Use
  Company Number: 2008AP001092

PATIENT
  Age: 65 Year
  Sex: Male

DRUGS (3)
  1. PRAVASTATIN [Suspect]
     Dosage: 40 MG
  2. SIMVASTATIN [Suspect]
     Dosage: 20 MG
  3. ROSUVASTATIN (ROSUVASTATIN) [Suspect]
     Dosage: 20 MG

REACTIONS (3)
  - CARNITINE PALMITOYLTRANSFERASE DEFICIENCY [None]
  - GENE MUTATION [None]
  - MYOPATHY [None]
